FAERS Safety Report 8831125 (Version 2)
Quarter: 2012Q4

REPORT INFORMATION
  Report Type: 
  Country: MX (occurrence: MX)
  Receive Date: 20121009
  Receipt Date: 20121015
  Transmission Date: 20130627
  Serious: Yes (Other)
  Sender: FDA-Public Use
  Company Number: PHHY2012MX088247

PATIENT
  Sex: Female

DRUGS (3)
  1. ZELMAC [Suspect]
     Indication: COLITIS
     Dosage: 6 mg,  2 DF per day
     Route: 048
     Dates: start: 20121001, end: 20121004
  2. PANTOPRAZOLE [Concomitant]
     Indication: GASTRITIS
  3. OMEPRAZOLE [Concomitant]
     Indication: GASTRITIS

REACTIONS (4)
  - Chest discomfort [Recovered/Resolved]
  - Hypoaesthesia [Unknown]
  - Paraesthesia [Recovered/Resolved]
  - Pain in extremity [Recovered/Resolved]
